FAERS Safety Report 4416168-7 (Version None)
Quarter: 2004Q2

REPORT INFORMATION
  Report Type: 
  Country: None (occurrence: None)
  Receive Date: 20040623
  Receipt Date: 20040428
  Transmission Date: 20050107
  Serious: No
  Sender: FDA-Public Use
  Company Number: WAES 0404USA02434

PATIENT
  Sex: Male

DRUGS (1)
  1. INVANZ [Suspect]

REACTIONS (1)
  - CONFUSIONAL STATE [None]
